FAERS Safety Report 5282596-3 (Version None)
Quarter: 2007Q1

REPORT INFORMATION
  Report Type: 
  Country: None (occurrence: None)
  Receive Date: 20070326
  Receipt Date: 20070314
  Transmission Date: 20070707
  Serious: Yes (Death, Hospitalization)
  Sender: FDA-Public Use
  Company Number: 2007SP002869

PATIENT
  Age: 47 Year
  Sex: Male
  Weight: 60 kg

DRUGS (4)
  1. PEG-INTRON [Suspect]
     Indication: HEPATITIS C
     Dosage: SC
     Route: 058
     Dates: start: 20061117, end: 20070127
  2. RIBAVIRIN [Suspect]
     Indication: HEPATITIS C
     Dosage: PO
     Route: 048
     Dates: start: 20061117, end: 20070127
  3. OXYCODONE HCL [Concomitant]
  4. LUNESTA [Concomitant]

REACTIONS (2)
  - METASTASIS [None]
  - PULMONARY HYPERTENSION [None]
